FAERS Safety Report 9086569 (Version 1)
Quarter: 2013Q1

REPORT INFORMATION
  Report Type: Spontaneous
  Country: US (occurrence: US)
  Receive Date: 20130130
  Receipt Date: 20130130
  Transmission Date: 20140127
  Serious: No
  Sender: FDA-Public Use
  Company Number: US-ABBOTT-12P-163-0985570-00

PATIENT
  Sex: Male
  Weight: 64.01 kg

DRUGS (1)
  1. HUMIRA [Suspect]
     Indication: PSORIASIS
     Route: 058
     Dates: start: 2010

REACTIONS (4)
  - Nail growth abnormal [Not Recovered/Not Resolved]
  - Onychomycosis [Not Recovered/Not Resolved]
  - Limb injury [Recovered/Resolved]
  - Nail discolouration [Not Recovered/Not Resolved]
